FAERS Safety Report 10413721 (Version 4)
Quarter: 2014Q3

REPORT INFORMATION
  Report Type: Report from Study
  Country: IT (occurrence: IT)
  Receive Date: 20140827
  Receipt Date: 20140926
  Transmission Date: 20150326
  Serious: Yes (Death, Hospitalization)
  Sender: FDA-Public Use
  Company Number: IT-B.I. PHARMACEUTICALS,INC./RIDGEFIELD-2014-BI-36123BI

PATIENT
  Age: 76 Year
  Sex: Male
  Weight: 75 kg

DRUGS (9)
  1. OXYCODONE/NALOXONE [Concomitant]
     Indication: PAIN MANAGEMENT
     Dosage: DAILY DOSE: 20/10 MG
     Route: 048
     Dates: start: 20140714
  2. BIBW 2992 [Suspect]
     Active Substance: AFATINIB
     Indication: NON-SMALL CELL LUNG CANCER
     Dosage: 30 MG
     Route: 048
     Dates: start: 20140521, end: 20140822
  3. ORAMORPH SR SUSTAINED RELEASE [Concomitant]
     Active Substance: MORPHINE SULFATE
     Indication: PAIN MANAGEMENT
     Dosage: 10 MG
     Route: 048
     Dates: start: 20140714
  4. BUDESONIDE/FORMOTEROLO [Concomitant]
     Indication: BRONCHOPNEUMOPATHY
     Dosage: DAILY DOSE: 160/7.5 MG
     Route: 055
     Dates: start: 20140714
  5. FLECAINIDE [Concomitant]
     Active Substance: FLECAINIDE
     Indication: ARRHYTHMIA
     Dosage: 200 MG
     Route: 048
  6. PREDNISONE. [Concomitant]
     Active Substance: PREDNISONE
     Indication: PROPHYLAXIS
     Dosage: 25 MG
     Route: 048
  7. PERINDOPRIL/AMLODIPINA [Concomitant]
     Indication: HYPERTENSION
     Dosage: DAILY DOSE: 10/5 MG
     Route: 048
  8. POTASSIUM CANRENOATE/BUTIZIDE [Concomitant]
     Indication: HYPERTENSION
     Dosage: DAILY DOSE: 50/5 MG
     Route: 048
  9. OXYGEN THERAPY [Concomitant]
     Active Substance: OXYGEN
     Indication: DYSPNOEA
     Dosage: DAILY DOSE: 1L/MIN
     Route: 055

REACTIONS (3)
  - Pyrexia [Recovered/Resolved]
  - Back pain [Unknown]
  - Intestinal infarction [Fatal]

NARRATIVE: CASE EVENT DATE: 20140801
